FAERS Safety Report 9162297 (Version 1)
Quarter: 2013Q1

REPORT INFORMATION
  Report Type: Spontaneous
  Country: ES (occurrence: None)
  Receive Date: 20130215
  Receipt Date: 20130215
  Transmission Date: 20140127
  Serious: Yes (Hospitalization)
  Sender: FDA-Public Use
  Company Number: SYM-2013-00491

PATIENT
  Age: 64 Year
  Sex: Male

DRUGS (4)
  1. 5-FU [Suspect]
     Indication: ADENOCARCINOMA OF COLON
     Dosage: EVERY OTHER WEEK, UNKNOWN
     Dates: start: 20130108, end: 20130108
  2. LEUCOVORIN [Suspect]
     Indication: ADENOCARCINOMA OF COLON
     Dosage: EVERY OTHER EVERT, UNKNOWN
     Dates: start: 20130108, end: 20130108
  3. IRINOTECAN [Suspect]
     Indication: ADENOCARCINOMA OF COLON
     Dosage: EVERY OTHER WEEK, UNKNOWN
     Dates: start: 20130108, end: 20130108
  4. AFLIBERCEPT [Suspect]
     Indication: ADENOCARCINOMA OF COLON
     Dosage: EVERY OTHER WEEK, INTRAVENOUS (NOT OTHERWISE SPECIFIED)
     Route: 042
     Dates: start: 20130108, end: 20130108

REACTIONS (1)
  - Diarrhoea [None]
